FAERS Safety Report 8131595-2 (Version None)
Quarter: 2012Q1

REPORT INFORMATION
  Report Type: 
  Country: None (occurrence: None)
  Receive Date: 20120103
  Receipt Date: 20111010
  Transmission Date: 20120608
  Serious: No
  Sender: FDA-Public Use
  Company Number: AE-2011-001190

PATIENT
  Age: 57 Year
  Sex: Female

DRUGS (7)
  1. INTERFERON [Concomitant]
  2. RIBAVIRIN [Concomitant]
  3. AMLODIPINE [Concomitant]
  4. HYDROCHLOROTHIAZIDE [Concomitant]
  5. INCIVEK [Suspect]
     Dosage: 2250 MG (750 MG,3 IN 1 D),ORAL
     Route: 050
     Dates: start: 20110824
  6. LOSARTAN POTASSIUM [Concomitant]
  7. LEVEMIR [Concomitant]

REACTIONS (4)
  - ABDOMINAL PAIN LOWER [None]
  - FAECES HARD [None]
  - MOOD ALTERED [None]
  - MYALGIA [None]
